FAERS Safety Report 6726411-7 (Version None)
Quarter: 2010Q2

REPORT INFORMATION
  Report Type: 
  Country: None (occurrence: None)
  Receive Date: 20100514
  Receipt Date: 20100512
  Transmission Date: 20101027
  Serious: Yes (Hospitalization)
  Sender: FDA-Public Use
  Company Number: Z0004141A

PATIENT
  Sex: Female
  Weight: 58 kg

DRUGS (3)
  1. PAZOPANIB [Suspect]
     Dosage: 800MG PER DAY
     Route: 048
     Dates: start: 20100421
  2. ACETAMINOPHEN [Concomitant]
     Dosage: 650MG THREE TIMES PER DAY
     Route: 048
     Dates: start: 20100505, end: 20100507
  3. CETIRIZINE HCL [Concomitant]
     Dosage: 5MG TWICE PER DAY
     Route: 048
     Dates: start: 20100505, end: 20100507

REACTIONS (1)
  - PYREXIA [None]
